FAERS Safety Report 19486875 (Version 1)
Quarter: 2021Q3

REPORT INFORMATION
  Report Type: Spontaneous
  Country: US (occurrence: US)
  Receive Date: 20210702
  Receipt Date: 20210702
  Transmission Date: 20211014
  Serious: Yes (Other)
  Sender: FDA-Public Use
  Company Number: US-GW PHARMA-202106USGW03127

PATIENT

DRUGS (2)
  1. EPIDIOLEX [Suspect]
     Active Substance: CANNABIDIOL
     Indication: SEIZURE
     Dosage: 100 MILLIGRAM, PRN
     Route: 048
     Dates: start: 202103
  2. HYDROCODONE [Interacting]
     Active Substance: HYDROCODONE
     Indication: PROCEDURAL PAIN
     Dosage: UNK
     Route: 065
     Dates: start: 202106, end: 202106

REACTIONS (6)
  - Procedural pain [Unknown]
  - Product administration error [Unknown]
  - Cyst [Unknown]
  - Drug interaction [Unknown]
  - Abdominal discomfort [Unknown]
  - Somnolence [Unknown]

NARRATIVE: CASE EVENT DATE: 2021
